FAERS Safety Report 13913326 (Version 1)
Quarter: 2017Q3

REPORT INFORMATION
  Report Type: Spontaneous
  Country: US (occurrence: US)
  Receive Date: 20170828
  Receipt Date: 20170828
  Transmission Date: 20171127
  Serious: No
  Sender: FDA-Public Use
  Company Number: US-ROCHE-1127262

PATIENT
  Sex: Male
  Weight: 37.3 kg

DRUGS (3)
  1. ARGININE [Concomitant]
     Active Substance: ARGININE
     Route: 042
     Dates: start: 20010303
  2. L DOPA [Concomitant]
     Active Substance: LEVODOPA
     Route: 065
     Dates: start: 20010303
  3. NUTROPIN AQ [Suspect]
     Active Substance: SOMATROPIN
     Indication: GROWTH HORMONE DEFICIENCY
     Route: 058
     Dates: start: 20010413

REACTIONS (11)
  - Upper respiratory tract congestion [Unknown]
  - Depression [Unknown]
  - Drug dose omission [Unknown]
  - Cough [Unknown]
  - Rhinorrhoea [Unknown]
  - Mood swings [Unknown]
  - Skin atrophy [Unknown]
  - Scrotal erythema [Unknown]
  - Pollakiuria [Unknown]
  - Ear discomfort [Unknown]
  - Headache [Unknown]
